FAERS Safety Report 24726698 (Version 1)
Quarter: 2024Q4

REPORT INFORMATION
  Report Type: Other
  Country: US (occurrence: US)
  Receive Date: 20241212
  Receipt Date: 20241212
  Transmission Date: 20250114
  Serious: No
  Sender: SLATE RUN
  Company Number: US-SLATERUN-2024SRREG00154

PATIENT

DRUGS (1)
  1. IOPAMIDOL [Suspect]
     Active Substance: IOPAMIDOL
     Indication: X-ray
     Route: 037

REACTIONS (2)
  - Product quality issue [Unknown]
  - Device delivery system issue [Unknown]
